FAERS Safety Report 17744871 (Version 2)
Quarter: 2020Q2

REPORT INFORMATION
  Report Type: Spontaneous
  Country: US (occurrence: US)
  Receive Date: 20200505
  Receipt Date: 20200507
  Transmission Date: 20200714
  Serious: No
  Sender: FDA-Public Use
  Company Number: US-PFIZER INC-2020178139

PATIENT
  Sex: Female
  Weight: 44.44 kg

DRUGS (1)
  1. GABAPENTIN. [Suspect]
     Active Substance: GABAPENTIN
     Dosage: 100 MG

REACTIONS (6)
  - Withdrawal syndrome [Unknown]
  - Dyspnoea [Unknown]
  - Insomnia [Unknown]
  - Myalgia [Unknown]
  - Panic attack [Unknown]
  - Anxiety [Unknown]
